FAERS Safety Report 5484058-7 (Version None)
Quarter: 2007Q4

REPORT INFORMATION
  Report Type: 
  Country: None (occurrence: None)
  Receive Date: 20071009
  Receipt Date: 20071009
  Transmission Date: 20080405
  Serious: Yes (Hospitalization)
  Sender: FDA-Public Use
  Company Number: None

PATIENT
  Age: 72 Year
  Sex: Male

DRUGS (1)
  1. CEREBYX [Suspect]

REACTIONS (10)
  - ANTICONVULSANT DRUG LEVEL BELOW THERAPEUTIC [None]
  - BLISTER [None]
  - CONVULSION [None]
  - INCOHERENT [None]
  - OPEN WOUND [None]
  - SKIN DISCOLOURATION [None]
  - SKIN EXFOLIATION [None]
  - SUBARACHNOID HAEMORRHAGE [None]
  - SUBDURAL HAEMATOMA [None]
  - SYNCOPE [None]
